FAERS Safety Report 19631240 (Version 2)
Quarter: 2021Q3

REPORT INFORMATION
  Report Type: Report from Study
  Country: None (occurrence: CA)
  Receive Date: 20210729
  Receipt Date: 20210924
  Transmission Date: 20211014
  Serious: Yes (Hospitalization, Other)
  Sender: FDA-Public Use
  Company Number: CA-ABBVIE-21K-028-3782180-00

PATIENT
  Age: 48 Year
  Sex: Female

DRUGS (1)
  1. LUPRON DEPOT [Suspect]
     Active Substance: LEUPROLIDE ACETATE
     Indication: UTERINE LEIOMYOMA
     Route: 030
     Dates: start: 20181212

REACTIONS (3)
  - Treatment failure [Unknown]
  - Hysterectomy [Unknown]
  - Hospitalisation [Unknown]

NARRATIVE: CASE EVENT DATE: 201905
